FAERS Safety Report 8608221 (Version 4)
Quarter: 2012Q4

REPORT INFORMATION
  Report Type: 
  Country: JP (occurrence: JP)
  Receive Date: 20120611
  Receipt Date: 20120905
  Transmission Date: 20130627
  Serious: Yes (Other)
  Sender: FDA-Public Use
  Company Number: JP-UCBSA-058892

PATIENT
  Age: 42 Year
  Sex: Male
  Weight: 66 kg

DRUGS (5)
  1. E KEPPRA [Suspect]
     Indication: EPILEPSY
     Route: 048
     Dates: start: 20120412, end: 20120528
  2. ALEVIATIN [Concomitant]
     Indication: EPILEPSY
     Dosage: DAILY DOSE: 300 MG
     Route: 048
     Dates: start: 197109
  3. DEPAKENE-R [Concomitant]
     Indication: EPILEPSY
     Dosage: DAILY DOSE: 1200 MG
     Route: 048
     Dates: start: 19970612
  4. MYSTAN [Concomitant]
     Indication: EPILEPSY
     Dates: end: 20120412
  5. MYSTAN [Concomitant]
     Indication: EPILEPSY
     Dosage: MORNING AND EVENING
     Dates: start: 20120528

REACTIONS (1)
  - Epilepsy [Recovering/Resolving]
